FAERS Safety Report 7827864-3 (Version None)
Quarter: 2011Q4

REPORT INFORMATION
  Report Type: 
  Country: None (occurrence: None)
  Receive Date: 20111018
  Receipt Date: 20111006
  Transmission Date: 20120403
  Serious: Yes (Hospitalization)
  Sender: FDA-Public Use
  Company Number: CIP11002555

PATIENT
  Sex: Male

DRUGS (3)
  1. NEXIUM [Concomitant]
  2. CALTRATE /00108001/ (CALCIUM CARBONATE) [Concomitant]
  3. ACTONEL [Suspect]
     Dosage: 1 DOSE FORM CYCLIC DAILY, ORAL
     Route: 048
     Dates: start: 20110629

REACTIONS (2)
  - INTESTINAL OBSTRUCTION [None]
  - DIARRHOEA [None]
